FAERS Safety Report 8136528-0 (Version None)
Quarter: 2012Q1

REPORT INFORMATION
  Report Type: 
  Country: None (occurrence: None)
  Receive Date: 20120214
  Receipt Date: 20120203
  Transmission Date: 20120608
  Serious: Yes (Hospitalization)
  Sender: FDA-Public Use
  Company Number: PHHY2012DE009715

PATIENT

DRUGS (1)
  1. METHERGINE [Suspect]
     Dosage: 15 DRP, UNK
     Route: 048
     Dates: start: 20001005, end: 20001005

REACTIONS (3)
  - VOMITING [None]
  - RESTLESSNESS [None]
  - ACCIDENTAL DRUG INTAKE BY CHILD [None]
